FAERS Safety Report 14667291 (Version 4)
Quarter: 2018Q2

REPORT INFORMATION
  Report Type: Report from Study
  Country: KR (occurrence: KR)
  Receive Date: 20180322
  Receipt Date: 20180419
  Transmission Date: 20180711
  Serious: No
  Sender: FDA-Public Use
  Company Number: KR-ASTRAZENECA-2018SE34051

PATIENT
  Age: 899 Month
  Sex: Female

DRUGS (13)
  1. DURVALUMAB. [Suspect]
     Active Substance: DURVALUMAB
     Indication: NEOPLASM
     Route: 042
     Dates: start: 20170928, end: 20170928
  2. MEGESTROL [Concomitant]
     Active Substance: MEGESTROL
     Indication: DECREASED APPETITE
     Dosage: ORAL 5 ML QD, 625 MG QD
     Route: 048
     Dates: start: 20170802, end: 20171214
  3. OXYCODONE HYDROCHLORIDE. [Concomitant]
     Active Substance: OXYCODONE HYDROCHLORIDE
     Indication: FLANK PAIN
     Dosage: 5 MG QD
     Route: 048
     Dates: start: 20170901, end: 20171214
  4. DURVALUMAB. [Suspect]
     Active Substance: DURVALUMAB
     Indication: NEOPLASM
     Route: 042
     Dates: end: 20180104
  5. TARGIN(R) [Concomitant]
     Indication: ABDOMINAL PAIN
     Dosage: 10 MG BID
     Route: 048
     Dates: start: 20170901, end: 20171230
  6. LOSARTAN POTASSIUM. [Concomitant]
     Active Substance: LOSARTAN POTASSIUM
     Indication: HYPERTENSION
     Dosage: 50 MG BID
     Route: 048
     Dates: start: 2010
  7. BAZEDOXIFENE [Concomitant]
     Active Substance: BAZEDOXIFENE
     Indication: OSTEOARTHRITIS
     Dosage: 22.6 MG QD
     Route: 048
     Dates: start: 2010
  8. FOLIC ACID. [Concomitant]
     Active Substance: FOLIC ACID
     Indication: ANAEMIA
     Dosage: 1 MG QD
     Route: 048
     Dates: start: 20170904, end: 20171019
  9. DURVALUMAB. [Suspect]
     Active Substance: DURVALUMAB
     Indication: NEOPLASM
     Route: 042
     Dates: start: 20171128, end: 20171128
  10. DIACEREIN [Concomitant]
     Active Substance: DIACEREIN
     Indication: OSTEOARTHRITIS
     Dosage: 50 MG BID
     Route: 048
     Dates: start: 2010
  11. DURVALUMAB. [Suspect]
     Active Substance: DURVALUMAB
     Indication: NEOPLASM
     Route: 042
     Dates: start: 20171026, end: 20171026
  12. ZOLPIDEM [Concomitant]
     Active Substance: ZOLPIDEM\ZOLPIDEM TARTRATE
     Indication: INSOMNIA
     Dosage: 5 MG QD
     Route: 048
     Dates: start: 20170816, end: 20171012
  13. REBAMIPIDE [Concomitant]
     Active Substance: REBAMIPIDE
     Indication: HYPERTENSION
     Route: 048
     Dates: start: 2010

REACTIONS (1)
  - Lipase increased [Not Recovered/Not Resolved]

NARRATIVE: CASE EVENT DATE: 20171026
